FAERS Safety Report 10654767 (Version 1)
Quarter: 2014Q4

REPORT INFORMATION
  Report Type: Spontaneous
  Country: US (occurrence: US)
  Receive Date: 20141216
  Receipt Date: 20141216
  Transmission Date: 20150529
  Serious: No
  Sender: FDA-Public Use
  Company Number: US-PFIZER INC-2014340949

PATIENT
  Age: 45 Year
  Sex: Male
  Weight: 95.24 kg

DRUGS (1)
  1. VIAGRA [Suspect]
     Active Substance: SILDENAFIL CITRATE
     Dosage: 50 MG, UNK

REACTIONS (6)
  - Head discomfort [Unknown]
  - Ocular discomfort [Unknown]
  - Nasal congestion [Unknown]
  - Product quality issue [Unknown]
  - Ocular hyperaemia [Unknown]
  - Drug effect incomplete [Unknown]
